FAERS Safety Report 4823256-X (Version None)
Quarter: 2005Q4

REPORT INFORMATION
  Report Type: 
  Country: None (occurrence: None)
  Receive Date: 20051108
  Receipt Date: 20051108
  Transmission Date: 20060501
  Serious: Yes (Other)
  Sender: FDA-Public Use
  Company Number: None

PATIENT
  Age: 74 Year
  Sex: Male

DRUGS (1)
  1. FOSAMAX [Suspect]
     Indication: OSTEITIS DEFORMANS
     Dosage: 40 MG    DAILY    PO
     Route: 048
     Dates: start: 20051028, end: 20051105

REACTIONS (1)
  - EPISTAXIS [None]
